FAERS Safety Report 7087031-0 (Version None)
Quarter: 2010Q4

REPORT INFORMATION
  Report Type: 
  Country: None (occurrence: None)
  Receive Date: 20101106
  Receipt Date: 20101012
  Transmission Date: 20110411
  Serious: No
  Sender: FDA-Public Use
  Company Number: US-WYE-H17995010

PATIENT
  Sex: Female

DRUGS (2)
  1. PREMARIN [Suspect]
     Route: 067
  2. PREMARIN [Suspect]
     Route: 067

REACTIONS (2)
  - PRODUCT QUALITY ISSUE [None]
  - VULVOVAGINAL MYCOTIC INFECTION [None]
